FAERS Safety Report 8553204-0 (Version None)
Quarter: 2012Q3

REPORT INFORMATION
  Report Type: 
  Country: None (occurrence: None)
  Receive Date: 20120731
  Receipt Date: 20120724
  Transmission Date: 20120928
  Serious: Yes (Hospitalization, Other)
  Sender: FDA-Public Use
  Company Number: US-PFIZER INC-2012178934

PATIENT
  Sex: Female
  Weight: 91.61 kg

DRUGS (5)
  1. METFORMIN [Concomitant]
     Indication: DIABETES MELLITUS
     Dosage: 1000 MG, 2X/DAY
  2. GLYNASE [Suspect]
     Indication: DIABETES MELLITUS
     Dosage: 3 MG, DAILY
  3. AMLODIPINE/VALSARTAN [Concomitant]
     Indication: HYPERTENSION
     Dosage: 10/160 MG, DAILY
  4. INSULIN DETEMIR [Concomitant]
     Indication: DIABETES MELLITUS
     Dosage: 3 MG, DAILY
  5. PRAVASTATIN [Concomitant]
     Indication: BLOOD CHOLESTEROL INCREASED
     Dosage: 40 MG, DAILY

REACTIONS (2)
  - BREAST CANCER FEMALE [None]
  - GLAUCOMA [None]
